FAERS Safety Report 8450452-5 (Version None)
Quarter: 2012Q2

REPORT INFORMATION
  Report Type: 
  Country: None (occurrence: None)
  Receive Date: 20120620
  Receipt Date: 20120615
  Transmission Date: 20120825
  Serious: Yes (Death)
  Sender: FDA-Public Use
  Company Number: US-ASTELLAS-2012US005482

PATIENT
  Sex: Female

DRUGS (1)
  1. MYCAMINE [Suspect]
     Indication: PRODUCT USED FOR UNKNOWN INDICATION
     Dosage: 300 MG, UNKNOWN/D
     Route: 041
     Dates: start: 20120504, end: 20120506

REACTIONS (1)
  - DEATH [None]
